FAERS Safety Report 12996596 (Version 1)
Quarter: 2016Q4

REPORT INFORMATION
  Report Type: Spontaneous
  Country: US (occurrence: US)
  Receive Date: 20161204
  Receipt Date: 20161204
  Transmission Date: 20170207
  Serious: No
  Sender: FDA-Public Use
  Company Number: US-WARNER CHILCOTT, LLC-1060377

PATIENT
  Sex: Female

DRUGS (1)
  1. LO LOESTRIN FE [Suspect]
     Active Substance: ETHINYL ESTRADIOL\NORETHINDRONE ACETATE
     Route: 048
     Dates: start: 201606, end: 20160809

REACTIONS (15)
  - Food aversion [Unknown]
  - Nausea [Unknown]
  - Mood swings [Unknown]
  - Asthenia [Unknown]
  - Headache [Unknown]
  - Breast swelling [Unknown]
  - Malaise [Unknown]
  - Adverse event [Unknown]
  - Breast tenderness [Unknown]
  - Aversion [Unknown]
  - Amenorrhoea [Unknown]
  - Metrorrhagia [Recovered/Resolved]
  - Weight increased [Not Recovered/Not Resolved]
  - Feeling abnormal [Unknown]
  - Inappropriate schedule of drug administration [Unknown]

NARRATIVE: CASE EVENT DATE: 2016
